FAERS Safety Report 5018022-9 (Version None)
Quarter: 2006Q2

REPORT INFORMATION
  Report Type: 
  Country: None (occurrence: None)
  Receive Date: 20060530
  Receipt Date: 20050512
  Transmission Date: 20061013
  Serious: Yes (Disabling)
  Sender: FDA-Public Use
  Company Number: 2005074801

PATIENT
  Age: 84 Year
  Sex: Female
  Weight: 65 kg

DRUGS (11)
  1. LYRICA [Suspect]
     Indication: SCIATICA
     Dosage: 300 MG (150 MG, 2 IN 1 D), ORAL
     Route: 048
     Dates: start: 20050225, end: 20050502
  2. POTASSIUM CHLORIDE [Concomitant]
  3. ACETYLSALICYLIC ACID SRT [Concomitant]
  4. FUROSEMIDE [Concomitant]
  5. PARACETAMOL [Concomitant]
  6. DIGOXIN [Concomitant]
  7. NIFEDIPINE [Concomitant]
  8. VALSARTAN [Concomitant]
  9. KETOGIN (DIMETHYL-3, 3-DIIPHENYL-1-METHYLALLYLAMINE HCL, KETOBEMIDONE [Concomitant]
  10. GABAPENTIN [Concomitant]
  11. TRAMADOL HCL [Concomitant]

REACTIONS (4)
  - DEPRESSED LEVEL OF CONSCIOUSNESS [None]
  - DIFFICULTY IN WALKING [None]
  - FEELING DRUNK [None]
  - SPEECH DISORDER [None]
